FAERS Safety Report 14487512 (Version 1)
Quarter: 2018Q1

REPORT INFORMATION
  Report Type: Spontaneous
  Country: US (occurrence: US)
  Receive Date: 20180204
  Receipt Date: 20180204
  Transmission Date: 20180509
  Serious: No
  Sender: FDA-Public Use
  Company Number: None

PATIENT
  Age: 45 Year
  Sex: Female
  Weight: 65.25 kg

DRUGS (5)
  1. MULTIVITAMIN [Concomitant]
     Active Substance: VITAMINS
  2. HOMATROPINE METHYLBROMIDE AND HYDROCODONE BITARTRATE [Suspect]
     Active Substance: HOMATROPINE METHYLBROMIDE\HYDROCODONE BITARTRATE
     Indication: BRONCHITIS
     Dosage: QUANTITY:120 5MLS;?
     Route: 048
     Dates: start: 20180203, end: 20180204
  3. ESCITALOPRAM [Concomitant]
     Active Substance: ESCITALOPRAM OXALATE
  4. GLUCOSAMINE [Concomitant]
     Active Substance: GLUCOSAMINE
  5. HOMATROPINE METHYLBROMIDE AND HYDROCODONE BITARTRATE [Suspect]
     Active Substance: HOMATROPINE METHYLBROMIDE\HYDROCODONE BITARTRATE
     Indication: COUGH
     Dosage: QUANTITY:120 5MLS;?
     Route: 048
     Dates: start: 20180203, end: 20180204

REACTIONS (7)
  - Vomiting [None]
  - Panic attack [None]
  - Balance disorder [None]
  - Tremor [None]
  - Dizziness [None]
  - Deafness bilateral [None]
  - Hypoaesthesia [None]

NARRATIVE: CASE EVENT DATE: 20180204
